FAERS Safety Report 9392408 (Version 1)
Quarter: 2013Q3

REPORT INFORMATION
  Report Type: Spontaneous
  Country: US (occurrence: None)
  Receive Date: 20130708
  Receipt Date: 20130708
  Transmission Date: 20140515
  Serious: Yes (Hospitalization)
  Sender: FDA-Public Use
  Company Number: None

PATIENT
  Age: 13 Year
  Sex: Female
  Weight: 46.4 kg

DRUGS (2)
  1. FERRIPROX [Suspect]
     Indication: HAEMOCHROMATOSIS TRAIT
     Dosage: (2.5 X500MG TABS)
     Route: 048
     Dates: start: 20130329, end: 20130527
  2. FERRIPROX [Suspect]
     Indication: THALASSAEMIA
     Dosage: (2.5 X500MG TABS)
     Route: 048
     Dates: start: 20130329, end: 20130527

REACTIONS (6)
  - Back pain [None]
  - Serum ferritin decreased [None]
  - Fatigue [None]
  - Pyrexia [None]
  - Heart rate decreased [None]
  - Oxygen saturation decreased [None]
